FAERS Safety Report 12994720 (Version 3)
Quarter: 2017Q1

REPORT INFORMATION
  Report Type: Report from Study
  Country: US (occurrence: US)
  Receive Date: 20161202
  Receipt Date: 20170119
  Transmission Date: 20170428
  Serious: Yes (Life-Threatening, Hospitalization)
  Sender: FDA-Public Use
  Company Number: US-TEVA-716523USA

PATIENT
  Age: 60 Year
  Sex: Female
  Weight: 56 kg

DRUGS (16)
  1. ASP2215 [Suspect]
     Active Substance: GILTERITINIB
     Dosage: 200 MILLIGRAM DAILY;
     Route: 048
     Dates: start: 20160715, end: 20160914
  2. CIPRO [Concomitant]
     Active Substance: CIPROFLOXACIN HYDROCHLORIDE
     Dates: start: 20160915
  3. TACROLIMUS. [Suspect]
     Active Substance: TACROLIMUS
     Dosage: 4 MILLIGRAM DAILY;
     Route: 048
     Dates: start: 20160920, end: 20161102
  4. FLONASE [Concomitant]
     Active Substance: FLUTICASONE PROPIONATE
     Dosage: 50 FEG
  5. CETRIZINE [Concomitant]
     Active Substance: CETIRIZINE HYDROCHLORIDE
  6. OMEPRAZOLE. [Concomitant]
     Active Substance: OMEPRAZOLE
  7. BACTRIM [Concomitant]
     Active Substance: SULFAMETHOXAZOLE\TRIMETHOPRIM
  8. ACYCLOVIR. [Concomitant]
     Active Substance: ACYCLOVIR
     Dates: start: 20160129
  9. URSODIOL. [Concomitant]
     Active Substance: URSODIOL
  10. CALCIUM 600 + D [Concomitant]
     Active Substance: CALCIUM\VITAMIN D
  11. GLYBURIDE. [Suspect]
     Active Substance: GLYBURIDE
     Indication: HYPERGLYCAEMIA
     Dosage: 5 MILLIGRAM DAILY;
     Route: 048
     Dates: start: 20161021, end: 20161102
  12. ASP2215 [Suspect]
     Active Substance: GILTERITINIB
     Indication: ACUTE MYELOID LEUKAEMIA
     Dosage: 120 MILLIGRAM DAILY;
     Route: 048
     Dates: start: 20160603, end: 20160714
  13. ASP2215 [Suspect]
     Active Substance: GILTERITINIB
     Dosage: 120 MILLIGRAM DAILY;
     Route: 048
     Dates: start: 20161107, end: 20161201
  14. TACROLIMUS. [Suspect]
     Active Substance: TACROLIMUS
     Indication: IMMUNOSUPPRESSION
     Dosage: 5 MILLIGRAM DAILY;
     Route: 048
  15. ASP2215 [Suspect]
     Active Substance: GILTERITINIB
     Dosage: ONCE DAILY
     Route: 048
     Dates: end: 20161102
  16. VITAMIN B COMPLEX [Concomitant]
     Active Substance: CYANOCOBALAMIN\DEXPANTHENOL\NIACINAMIDE\PYRIDOXINE HYDROCHLORIDE\RIBOFLAVIN 5^-PHOSPHATE SODIUM\THIAMINE HYDROCHLORIDE\VITAMIN B COMPLEX

REACTIONS (13)
  - Affect lability [None]
  - Febrile neutropenia [None]
  - Stem cell transplant [None]
  - Clonus [None]
  - Pneumonia [None]
  - Pleural effusion [None]
  - Post procedural complication [None]
  - Fluid overload [None]
  - Hypoglycaemia [Recovered/Resolved]
  - Toxicity to various agents [None]
  - Dysstasia [None]
  - Mucosal inflammation [None]
  - Hypersensitivity [None]

NARRATIVE: CASE EVENT DATE: 20161102
